FAERS Safety Report 8533507-6 (Version None)
Quarter: 2012Q3

REPORT INFORMATION
  Report Type: 
  Country: None (occurrence: None)
  Receive Date: 20120724
  Receipt Date: 20120717
  Transmission Date: 20120928
  Serious: Yes (Other)
  Sender: FDA-Public Use
  Company Number: US-ELI_LILLY_AND_COMPANY-US201207005204

PATIENT
  Age: 66 Year
  Sex: Male

DRUGS (1)
  1. CIALIS [Suspect]
     Indication: ERECTILE DYSFUNCTION
     Dosage: UNK, PRN

REACTIONS (3)
  - PROSTATOMEGALY [None]
  - PROSTATIC DISORDER [None]
  - DRUG INEFFECTIVE [None]
